FAERS Safety Report 13340768 (Version 1)
Quarter: 2017Q1

REPORT INFORMATION
  Report Type: Spontaneous
  Country: AU (occurrence: AU)
  Receive Date: 20170316
  Receipt Date: 20170316
  Transmission Date: 20170428
  Serious: Yes (Other)
  Sender: FDA-Public Use
  Company Number: AU-BEH-2017078871

PATIENT
  Age: 12 Year
  Sex: Female

DRUGS (3)
  1. HUMAN IMMUNOGLOBULIN IV (INN) [Suspect]
     Active Substance: HUMAN IMMUNOGLOBULIN G
     Indication: SCLERODERMA
  2. CORTICOSTEROIDS [Suspect]
     Active Substance: CORTICOSTEROID NOS
     Route: 065
  3. METHOTREXATE. [Suspect]
     Active Substance: METHOTREXATE
     Route: 065

REACTIONS (7)
  - Drug ineffective for unapproved indication [Unknown]
  - Scleroderma renal crisis [Recovered/Resolved]
  - Device dependence [Recovered/Resolved]
  - Renal artery occlusion [Recovered/Resolved]
  - Anuria [Recovered/Resolved]
  - Renal impairment [Recovered/Resolved]
  - Arterial disorder [Recovered/Resolved]
